FAERS Safety Report 5924064-9 (Version None)
Quarter: 2008Q4

REPORT INFORMATION
  Report Type: 
  Country: None (occurrence: None)
  Receive Date: 20081015
  Receipt Date: 20080930
  Transmission Date: 20090506
  Serious: Yes (Hospitalization)
  Sender: FDA-Public Use
  Company Number: 2008S1017788

PATIENT
  Age: 51 Year
  Sex: Female

DRUGS (2)
  1. FLUCONAZOLE [Suspect]
     Indication: VULVOVAGINAL CANDIDIASIS
     Dosage: 150 MG; ORAL
     Route: 048
     Dates: start: 20080826, end: 20080826
  2. FEMOSTON [Concomitant]

REACTIONS (1)
  - STEVENS-JOHNSON SYNDROME [None]
